FAERS Safety Report 19974437 (Version 1)
Quarter: 2021Q4

REPORT INFORMATION
  Report Type: Spontaneous
  Country: GB (occurrence: GB)
  Receive Date: 20211020
  Receipt Date: 20211020
  Transmission Date: 20220304
  Serious: Yes (Hospitalization, Other)
  Sender: FDA-Public Use
  Company Number: GB-MLMSERVICE-20211006-3152075-1

PATIENT
  Age: 80 Year
  Sex: Male

DRUGS (9)
  1. SIMVASTATIN [Suspect]
     Active Substance: SIMVASTATIN
     Indication: Product used for unknown indication
  2. BUTYLSCOPOLAMINE BROMIDE [Concomitant]
     Active Substance: BUTYLSCOPOLAMINE BROMIDE
     Indication: Salivary hypersecretion
     Dosage: 1 MG/72 HOURS
     Route: 062
  3. COCODAMOL [Concomitant]
     Active Substance: ACETAMINOPHEN\CODEINE PHOSPHATE
  4. PERINDOPRIL [Concomitant]
     Active Substance: PERINDOPRIL
  5. APIXABAN [Concomitant]
     Active Substance: APIXABAN
  6. BUTYLSCOPOLAMINE BROMIDE [Concomitant]
     Active Substance: BUTYLSCOPOLAMINE BROMIDE
     Indication: Salivary hypersecretion
  7. HYALURONIC ACID [Concomitant]
     Active Substance: HYALURONIC ACID
  8. QUININE SULFATE [Concomitant]
     Active Substance: QUININE SULFATE
  9. CARBOMER [Concomitant]
     Active Substance: CARBOMER
     Dosage: EYE OINTMENT ONE TIME A DAY IN THE LEFT EYE.

REACTIONS (2)
  - Condition aggravated [Recovered/Resolved]
  - Rhabdomyolysis [Recovered/Resolved]
